FAERS Safety Report 6186097-X (Version None)
Quarter: 2009Q2

REPORT INFORMATION
  Report Type: 
  Country: None (occurrence: None)
  Receive Date: 20090511
  Receipt Date: 20090429
  Transmission Date: 20091009
  Serious: Yes (Hospitalization)
  Sender: FDA-Public Use
  Company Number: US-WYE-H09179309

PATIENT
  Age: 40 Year
  Sex: Female

DRUGS (2)
  1. PRISTIQ [Suspect]
     Dosage: UNKNOWN
     Route: 048
     Dates: start: 20090201
  2. LEXAPRO [Suspect]
     Dosage: UNKNOWN
     Dates: end: 20090201

REACTIONS (6)
  - DYSSTASIA [None]
  - EATING DISORDER [None]
  - FATIGUE [None]
  - INSOMNIA [None]
  - MOVEMENT DISORDER [None]
  - UNEVALUABLE EVENT [None]
